FAERS Safety Report 6779765-X (Version None)
Quarter: 2010Q2

REPORT INFORMATION
  Report Type: 
  Country: None (occurrence: None)
  Receive Date: 20100618
  Receipt Date: 20100608
  Transmission Date: 20101027
  Serious: Yes (Hospitalization, Other)
  Sender: FDA-Public Use
  Company Number: JP-JNJFOC-20100300577

PATIENT
  Sex: Male
  Weight: 53 kg

DRUGS (12)
  1. REMICADE [Suspect]
     Indication: CROHN'S DISEASE
     Dosage: 16 INFUSIONS ON UNSPECIFIED DATES
     Route: 042
  2. REMICADE [Suspect]
     Route: 042
  3. REMICADE [Suspect]
     Route: 042
  4. REMICADE [Suspect]
     Route: 042
  5. IMURAN [Suspect]
     Indication: CROHN'S DISEASE
     Route: 048
  6. ELENTAL [Concomitant]
     Indication: CROHN'S DISEASE
     Dosage: 1 PAC
     Route: 048
  7. PENTASA [Concomitant]
     Indication: CROHN'S DISEASE
     Route: 048
  8. DAI-KENCHU-TO [Concomitant]
     Indication: ILEUS
     Route: 048
  9. PANTOSIN [Concomitant]
     Indication: ILEUS
     Route: 048
  10. MAGNESIUM OXIDE [Concomitant]
     Indication: ILEUS
     Route: 048
  11. ACINON [Concomitant]
     Indication: OESOPHAGITIS
     Route: 048
  12. ANTIBIOTICS [Concomitant]

REACTIONS (1)
  - HODGKIN'S DISEASE [None]
